FAERS Safety Report 12265503 (Version 2)
Quarter: 2018Q2

REPORT INFORMATION
  Report Type: Spontaneous
  Country: US (occurrence: US)
  Receive Date: 20160413
  Receipt Date: 20180604
  Transmission Date: 20180711
  Serious: Yes (Death, Hospitalization)
  Sender: FDA-Public Use
  Company Number: US-JNJFOC-20160324635

PATIENT
  Age: 88 Year
  Sex: Female

DRUGS (25)
  1. XARELTO [Suspect]
     Active Substance: RIVAROXABAN
     Indication: CEREBROVASCULAR ACCIDENT PROPHYLAXIS
     Route: 048
     Dates: start: 20130122, end: 20130205
  2. XARELTO [Suspect]
     Active Substance: RIVAROXABAN
     Indication: ATRIAL FIBRILLATION
     Route: 048
     Dates: start: 20150522, end: 20150714
  3. FERROUS SULFATE. [Concomitant]
     Active Substance: FERROUS SULFATE
     Route: 065
  4. LEVOTHYROXINE. [Concomitant]
     Active Substance: LEVOTHYROXINE
     Route: 065
  5. XARELTO [Suspect]
     Active Substance: RIVAROXABAN
     Indication: THROMBOSIS PROPHYLAXIS
     Route: 048
     Dates: start: 20130205, end: 20140131
  6. XARELTO [Suspect]
     Active Substance: RIVAROXABAN
     Indication: CEREBROVASCULAR ACCIDENT PROPHYLAXIS
     Route: 048
     Dates: start: 20150522, end: 20150714
  7. DILTIAZEM. [Concomitant]
     Active Substance: DILTIAZEM
     Route: 065
  8. HYDRALAZINE [Concomitant]
     Active Substance: HYDRALAZINE HYDROCHLORIDE
     Route: 065
  9. KLOR-CON [Concomitant]
     Active Substance: POTASSIUM CHLORIDE
     Route: 065
  10. NITROSTAT [Concomitant]
     Active Substance: NITROGLYCERIN
     Route: 065
  11. URSODIOL. [Concomitant]
     Active Substance: URSODIOL
     Route: 065
  12. DIGOXIN. [Concomitant]
     Active Substance: DIGOXIN
     Route: 065
  13. METOPROLOL. [Concomitant]
     Active Substance: METOPROLOL
     Route: 065
  14. XARELTO [Suspect]
     Active Substance: RIVAROXABAN
     Indication: ATRIAL FIBRILLATION
     Route: 048
     Dates: start: 20130205, end: 20140131
  15. XARELTO [Suspect]
     Active Substance: RIVAROXABAN
     Indication: THROMBOSIS PROPHYLAXIS
     Route: 048
     Dates: start: 20150522, end: 20150714
  16. SIMVASTATIN. [Concomitant]
     Active Substance: SIMVASTATIN
     Indication: PRODUCT USED FOR UNKNOWN INDICATION
     Route: 065
  17. HUMALOG [Concomitant]
     Active Substance: INSULIN LISPRO
     Route: 065
  18. COLACE [Concomitant]
     Active Substance: DOCUSATE SODIUM
     Route: 065
  19. XARELTO [Suspect]
     Active Substance: RIVAROXABAN
     Indication: ATRIAL FIBRILLATION
     Route: 048
     Dates: start: 20130122, end: 20130205
  20. ISOSORBIDE MONONITRATE. [Concomitant]
     Active Substance: ISOSORBIDE MONONITRATE
     Route: 065
  21. BUMETANIDE. [Concomitant]
     Active Substance: BUMETANIDE
     Route: 065
  22. AGGRENOX [Concomitant]
     Active Substance: ASPIRIN\DIPYRIDAMOLE
     Route: 065
  23. CELEXA [Concomitant]
     Active Substance: CITALOPRAM HYDROBROMIDE
     Route: 065
  24. XARELTO [Suspect]
     Active Substance: RIVAROXABAN
     Indication: THROMBOSIS PROPHYLAXIS
     Route: 048
     Dates: start: 20130122, end: 20130205
  25. XARELTO [Suspect]
     Active Substance: RIVAROXABAN
     Indication: CEREBROVASCULAR ACCIDENT PROPHYLAXIS
     Route: 048
     Dates: start: 20130205, end: 20140131

REACTIONS (5)
  - Off label use [Unknown]
  - Gastrointestinal haemorrhage [Fatal]
  - Underdose [Unknown]
  - Cardiac disorder [Fatal]
  - Anaemia [Fatal]

NARRATIVE: CASE EVENT DATE: 20130122
